FAERS Safety Report 8417527-8 (Version None)
Quarter: 2012Q2

REPORT INFORMATION
  Report Type: 
  Country: None (occurrence: None)
  Receive Date: 20120606
  Receipt Date: 20120522
  Transmission Date: 20120825
  Serious: No
  Sender: FDA-Public Use
  Company Number: US-ASTRAZENECA-2009UW12821

PATIENT
  Age: 61 Year
  Sex: Male

DRUGS (4)
  1. SEROQUEL [Suspect]
     Indication: SLEEP DISORDER
     Route: 048
  2. RISPERDAL [Concomitant]
  3. VALIUM [Concomitant]
  4. SEROQUEL [Suspect]
     Route: 048

REACTIONS (4)
  - VISION BLURRED [None]
  - ABNORMAL SENSATION IN EYE [None]
  - RESTLESS LEGS SYNDROME [None]
  - INSOMNIA [None]
